FAERS Safety Report 12010608 (Version 1)
Quarter: 2016Q1

REPORT INFORMATION
  Report Type: Spontaneous
  Country: US (occurrence: None)
  Receive Date: 20160204
  Receipt Date: 20160204
  Transmission Date: 20160526
  Serious: No
  Sender: FDA-Public Use
  Company Number: None

PATIENT
  Age: 65 Year
  Sex: Male
  Weight: 76.66 kg

DRUGS (3)
  1. LOSARTAN. [Concomitant]
     Active Substance: LOSARTAN
  2. 1 A DAY MEN^S MULTI [Concomitant]
  3. PANTOPRAZOLE 40 MG KREMERS [Suspect]
     Active Substance: PANTOPRAZOLE SODIUM
     Indication: GASTROOESOPHAGEAL REFLUX DISEASE
     Route: 048
     Dates: start: 20110101

REACTIONS (2)
  - Pain in extremity [None]
  - Limb discomfort [None]

NARRATIVE: CASE EVENT DATE: 20160202
